FAERS Safety Report 12565388 (Version 2)
Quarter: 2016Q3

REPORT INFORMATION
  Report Type: Spontaneous
  Country: ES (occurrence: ES)
  Receive Date: 20160718
  Receipt Date: 20160727
  Transmission Date: 20161109
  Serious: Yes (Hospitalization, Other)
  Sender: FDA-Public Use
  Company Number: ES-SUN PHARMACEUTICAL INDUSTRIES LTD-2016RR-120311

PATIENT
  Age: 4 Year
  Sex: Male

DRUGS (2)
  1. SERTRALINE [Suspect]
     Active Substance: SERTRALINE HYDROCHLORIDE
     Indication: PRODUCT USED FOR UNKNOWN INDICATION
     Dosage: UNK
     Route: 048
  2. QUETIAPINE. [Suspect]
     Active Substance: QUETIAPINE
     Indication: PRODUCT USED FOR UNKNOWN INDICATION
     Dosage: UNK
     Route: 048

REACTIONS (17)
  - Asthenia [Recovering/Resolving]
  - Generalised tonic-clonic seizure [Unknown]
  - Intentional product misuse [Unknown]
  - Somnolence [Recovering/Resolving]
  - Dysarthria [Recovering/Resolving]
  - Urinary incontinence [Unknown]
  - Reflexes abnormal [Unknown]
  - Dystonic tremor [Unknown]
  - Blepharospasm [Unknown]
  - Extrapyramidal disorder [Unknown]
  - Mydriasis [Recovered/Resolved]
  - Rash erythematous [Unknown]
  - Toxicity to various agents [Recovering/Resolving]
  - Gait disturbance [Recovering/Resolving]
  - Constipation [Unknown]
  - Miosis [Unknown]
  - Lacrimation increased [Unknown]
